FAERS Safety Report 9807078 (Version 2)
Quarter: 2014Q1

REPORT INFORMATION
  Report Type: Spontaneous
  Country: MX (occurrence: MX)
  Receive Date: 20140110
  Receipt Date: 20140110
  Transmission Date: 20141002
  Serious: Yes (Other)
  Sender: FDA-Public Use
  Company Number: MX-ROCHE-1327692

PATIENT
  Age: 75 Year
  Sex: Male
  Weight: 78 kg

DRUGS (8)
  1. HERCEPTIN [Suspect]
     Indication: GASTRIC CANCER
     Route: 042
     Dates: start: 201305
  2. CARBOPLATIN [Suspect]
     Indication: PRODUCT USED FOR UNKNOWN INDICATION
     Route: 042
     Dates: start: 201301
  3. DOCETAXEL [Suspect]
     Indication: PRODUCT USED FOR UNKNOWN INDICATION
     Route: 042
     Dates: start: 201301
  4. OXALIPLATIN [Concomitant]
     Indication: GASTRIC CANCER
     Route: 042
     Dates: start: 201305, end: 201312
  5. XELODA [Suspect]
     Indication: GASTRIC CANCER
     Route: 048
     Dates: start: 201305, end: 201312
  6. XELODA [Suspect]
     Dosage: 7 TIMES PER DAY (3-0-4) DURING 14 DAYS FOLLOWED BY 7-DAY REST PERIOD
     Route: 065
  7. PERJETA [Suspect]
     Indication: GASTRIC CANCER
     Route: 042
     Dates: start: 201305
  8. PERJETA [Suspect]
     Indication: OFF LABEL USE

REACTIONS (2)
  - Disease progression [Not Recovered/Not Resolved]
  - Off label use [Unknown]
